FAERS Safety Report 16064685 (Version 2)
Quarter: 2019Q2

REPORT INFORMATION
  Report Type: Report from Study
  Country: DO (occurrence: DO)
  Receive Date: 20190312
  Receipt Date: 20190403
  Transmission Date: 20190711
  Serious: Yes (Other)
  Sender: FDA-Public Use
  Company Number: PHHY2019DO054460

PATIENT
  Sex: Female
  Weight: 107.94 kg

DRUGS (8)
  1. EXFORGE [Suspect]
     Active Substance: AMLODIPINE BESYLATE\VALSARTAN
     Indication: PRODUCT USED FOR UNKNOWN INDICATION
     Dosage: 1 DF, (5 MG AMLODIPINE, 320 MG VALSARTAN), 10 YEARS AGO APPROXIMATELY
     Route: 065
  2. NATRILIX [Concomitant]
     Active Substance: INDAPAMIDE
     Indication: PRODUCT USED FOR UNKNOWN INDICATION
     Route: 065
  3. GALVUS MET [Suspect]
     Active Substance: METFORMIN HYDROCHLORIDE\VILDAGLIPTIN
     Indication: BLOOD GLUCOSE ABNORMAL
     Dosage: (50 MG VILDAGLIPTIN, 850 MG METFORMIN HYDROCHLORIDE)
     Route: 065
  4. EXFORGE HCT [Suspect]
     Active Substance: AMLODIPINE BESYLATE\HYDROCHLOROTHIAZIDE\VALSARTAN
     Indication: PRODUCT USED FOR UNKNOWN INDICATION
     Route: 065
  5. VITAMIN D2 [Concomitant]
     Active Substance: ERGOCALCIFEROL
     Indication: PRODUCT USED FOR UNKNOWN INDICATION
     Dosage: 1000 MG, QD
     Route: 065
  6. SYNTHROID [Concomitant]
     Active Substance: LEVOTHYROXINE SODIUM
     Indication: PRODUCT USED FOR UNKNOWN INDICATION
     Route: 065
  7. EXFORGE [Suspect]
     Active Substance: AMLODIPINE BESYLATE\VALSARTAN
     Dosage: 1 DF, (10 MG AMLODIPINE, 320 MG VALSARTAN)
     Route: 065
  8. NELBIS [Concomitant]
     Active Substance: METFORMIN HYDROCHLORIDE
     Indication: PRODUCT USED FOR UNKNOWN INDICATION
     Dosage: 2.5 OT, UNK
     Route: 065

REACTIONS (9)
  - Arterial occlusive disease [Unknown]
  - Nodule [Unknown]
  - Blood pressure increased [Unknown]
  - Burning sensation [Unknown]
  - Thyroid disorder [Unknown]
  - Feeling abnormal [Unknown]
  - Weight increased [Unknown]
  - Pain in extremity [Unknown]
  - Weight decreased [Unknown]
